FAERS Safety Report 6162483-9 (Version None)
Quarter: 2009Q2

REPORT INFORMATION
  Report Type: 
  Country: None (occurrence: None)
  Receive Date: 20090421
  Receipt Date: 20090416
  Transmission Date: 20091009
  Serious: Yes (Disabling)
  Sender: FDA-Public Use
  Company Number: PHEH2009US03194

PATIENT
  Age: 53 Year
  Sex: Female
  Weight: 143.76 kg

DRUGS (3)
  1. RECLAST [Suspect]
     Indication: OSTEOPOROSIS
     Dosage: 5 MG, ANNUALLY
     Route: 042
     Dates: start: 20090316
  2. VITAMIN D [Concomitant]
  3. FOLIC ACID [Concomitant]

REACTIONS (5)
  - BONE PAIN [None]
  - NEURALGIA [None]
  - NEURITIS [None]
  - OEDEMA PERIPHERAL [None]
  - POLYMYOSITIS [None]
